FAERS Safety Report 15299156 (Version 2)
Quarter: 2018Q4

REPORT INFORMATION
  Report Type: Spontaneous
  Country: FR (occurrence: FR)
  Receive Date: 20180821
  Receipt Date: 20180910
  Transmission Date: 20190204
  Serious: Yes (Hospitalization, Other)
  Sender: FDA-Public Use
  Company Number: FR-AUROBINDO-AUR-APL-2018-042202

PATIENT
  Age: 62 Year
  Sex: Female

DRUGS (7)
  1. EMEND [Suspect]
     Active Substance: APREPITANT
     Indication: VOMITING
     Dosage: UNK,UNSPECIFIED
     Route: 048
     Dates: start: 20180719, end: 20180720
  2. CYTARABINE. [Suspect]
     Active Substance: CYTARABINE
     Indication: MARGINAL ZONE LYMPHOMA
     Dosage: 6 GRAM, UNK
     Route: 065
     Dates: start: 20180720, end: 20180720
  3. CYTARABINE. [Suspect]
     Active Substance: CYTARABINE
     Dosage: 6 G, UNK
  4. POLARAMINE [Suspect]
     Active Substance: DEXCHLORPHENIRAMINE MALEATE
     Indication: ALLERGY PROPHYLAXIS
     Dosage: UNK
     Route: 048
     Dates: start: 20180719, end: 20180720
  5. MABTHERA [Suspect]
     Active Substance: RITUXIMAB
     Indication: MARGINAL ZONE LYMPHOMA
     Dosage: UNK, UNSPECIFIED
     Route: 042
     Dates: start: 20180719, end: 20180719
  6. ZOPHREN                            /00955301/ [Suspect]
     Active Substance: ONDANSETRON
     Indication: VOMITING
     Dosage: 8 MILLIGRAM, DAILY
     Route: 048
     Dates: start: 20180719, end: 20180720
  7. OXALIPLATIN. [Suspect]
     Active Substance: OXALIPLATIN
     Indication: MARGINAL ZONE LYMPHOMA
     Dosage: UNK, UNSPECIFIED
     Route: 042
     Dates: start: 20180719, end: 20180719

REACTIONS (1)
  - Hepatocellular injury [Recovering/Resolving]

NARRATIVE: CASE EVENT DATE: 20180723
